FAERS Safety Report 7777663-6 (Version None)
Quarter: 2011Q3

REPORT INFORMATION
  Report Type: 
  Country: None (occurrence: None)
  Receive Date: 20110926
  Receipt Date: 20110922
  Transmission Date: 20111222
  Serious: Yes (Death, Hospitalization)
  Sender: FDA-Public Use
  Company Number: GB-TEVA-302022ISR

PATIENT
  Age: 57 Year
  Sex: Female
  Weight: 57 kg

DRUGS (15)
  1. BISOPROLOL FUMARATE [Concomitant]
  2. ISOSORBIDE MONONITRATE [Concomitant]
  3. ZOPICLONE [Concomitant]
  4. WARFARIN SODIUM [Concomitant]
  5. PANTOPRAZOLE [Concomitant]
  6. PIPERACILLIN AND TAZOBACTAM [Suspect]
     Indication: NEUTROPENIC INFECTION
     Route: 042
     Dates: start: 20110810
  7. SIMVASTATIN [Concomitant]
  8. GEMCITABINE [Suspect]
     Indication: PANCREATIC CARCINOMA
     Route: 042
     Dates: start: 20110729, end: 20110729
  9. DIAZEPAM [Concomitant]
  10. URSODIOL [Concomitant]
  11. GENTAMICIN [Suspect]
     Indication: NEUTROPENIC INFECTION
     Dates: start: 20110810
  12. DOTHIEPIN HYDROCHLORIDE [Concomitant]
  13. FUROSEMIDE [Concomitant]
  14. IRBESARTAN [Concomitant]
  15. OXYCONTIN [Concomitant]

REACTIONS (3)
  - TOXIC EPIDERMAL NECROLYSIS [None]
  - BLISTER [None]
  - RASH [None]
